FAERS Safety Report 26010622 (Version 1)
Quarter: 2025Q4

REPORT INFORMATION
  Report Type: Spontaneous
  Country: AE (occurrence: AE)
  Receive Date: 20251107
  Receipt Date: 20251107
  Transmission Date: 20260117
  Serious: Yes (Other)
  Sender: RANBAXY
  Company Number: AE-SUN PHARMACEUTICAL INDUSTRIES INC-2025R1-534643

PATIENT
  Age: 30 Year
  Sex: Female

DRUGS (2)
  1. PALIPERIDONE [Suspect]
     Active Substance: PALIPERIDONE
     Indication: Bipolar disorder
     Dosage: 150 MILLIGRAM, 1DOSE/MONTH
     Route: 065
  2. VALPROIC ACID [Suspect]
     Active Substance: VALPROIC ACID
     Indication: Bipolar disorder
     Dosage: 1500 MILLIGRAM, DAILY
     Route: 065

REACTIONS (3)
  - Hirsutism [Unknown]
  - Amenorrhoea [Unknown]
  - Hyperprolactinaemia [Unknown]
